FAERS Safety Report 5733582-8 (Version None)
Quarter: 2008Q2

REPORT INFORMATION
  Report Type: 
  Country: None (occurrence: None)
  Receive Date: 20080509
  Receipt Date: 20080506
  Transmission Date: 20081010
  Serious: Yes (Death)
  Sender: FDA-Public Use
  Company Number: FR-JNJFOC-20080500866

PATIENT
  Sex: Male

DRUGS (8)
  1. EPITOMAX [Suspect]
     Indication: PAIN
     Route: 048
  2. TYSABRI [Suspect]
     Indication: MULTIPLE SCLEROSIS
     Route: 050
  3. RIVOTRIL [Suspect]
     Route: 048
  4. RIVOTRIL [Suspect]
     Route: 048
  5. RIVOTRIL [Suspect]
     Route: 048
  6. RIVOTRIL [Suspect]
     Indication: PAIN
     Route: 048
  7. LAROXYL [Suspect]
     Route: 048
  8. LAROXYL [Suspect]
     Indication: DRUG USE FOR UNKNOWN INDICATION
     Route: 048

REACTIONS (1)
  - DEATH [None]
